FAERS Safety Report 21630112 (Version 1)
Quarter: 2022Q4

REPORT INFORMATION
  Report Type: Spontaneous
  Country: US (occurrence: US)
  Receive Date: 20221122
  Receipt Date: 20221122
  Transmission Date: 20230113
  Serious: No
  Sender: FDA-Public Use
  Company Number: US-LUNDBECK-DKLU3053861

PATIENT
  Age: 13 Year
  Sex: Female

DRUGS (2)
  1. SABRIL [Suspect]
     Active Substance: VIGABATRIN
     Indication: Partial seizures
     Route: 048
     Dates: start: 20211221
  2. SABRIL [Suspect]
     Active Substance: VIGABATRIN
     Indication: Simple partial seizures

REACTIONS (1)
  - Mouth ulceration [Unknown]
